FAERS Safety Report 6043195-9 (Version None)
Quarter: 2009Q1

REPORT INFORMATION
  Report Type: 
  Country: None (occurrence: None)
  Receive Date: 20090119
  Receipt Date: 20090108
  Transmission Date: 20090719
  Serious: Yes (Hospitalization)
  Sender: FDA-Public Use
  Company Number: DE-ELI_LILLY_AND_COMPANY-DE200901001221

PATIENT
  Sex: Female
  Weight: 174 kg

DRUGS (2)
  1. BYETTA [Suspect]
     Dosage: 10 UG, UNK
  2. METFORMIN [Concomitant]
     Dosage: 1000 MG, UNK

REACTIONS (1)
  - OPEN WOUND [None]
